FAERS Safety Report 6355918-X (Version None)
Quarter: 2009Q3

REPORT INFORMATION
  Report Type: 
  Country: None (occurrence: None)
  Receive Date: 20090914
  Receipt Date: 20090914
  Transmission Date: 20100115
  Serious: No
  Sender: FDA-Public Use
  Company Number: None

PATIENT
  Age: 41 Year
  Sex: Female
  Weight: 106.5953 kg

DRUGS (1)
  1. IMITREX [Suspect]
     Indication: MIGRAINE
     Dosage: 6MG ONCE AT ONSET SQ
     Route: 058
     Dates: start: 20090827, end: 20090911

REACTIONS (2)
  - CHEST PAIN [None]
  - IMMEDIATE POST-INJECTION REACTION [None]
